FAERS Safety Report 16332652 (Version 1)
Quarter: 2019Q2

REPORT INFORMATION
  Report Type: Spontaneous
  Country: US (occurrence: US)
  Receive Date: 20190520
  Receipt Date: 20190520
  Transmission Date: 20190711
  Serious: No
  Sender: FDA-Public Use
  Company Number: US-PFIZER INC-2019208624

PATIENT
  Sex: Female

DRUGS (1)
  1. ADVIL LIQUI-GELS [Suspect]
     Active Substance: IBUPROFEN
     Indication: PAIN
     Dosage: UNK (TAKING AT LEAST 2 ADVIL LIQUIGELS AT A TIME SINCE WEDNESDAY)

REACTIONS (2)
  - Constipation [Unknown]
  - Therapeutic response decreased [Unknown]
